FAERS Safety Report 7123524-5 (Version None)
Quarter: 2010Q4

REPORT INFORMATION
  Report Type: 
  Country: None (occurrence: None)
  Receive Date: 20101125
  Receipt Date: 20101115
  Transmission Date: 20110411
  Serious: Yes (Hospitalization, Disabling, Other)
  Sender: FDA-Public Use
  Company Number: JP-PFIZER INC-2010147494

PATIENT
  Age: 18 Year
  Sex: Male

DRUGS (12)
  1. SOLU-MEDROL [Suspect]
     Indication: RELAPSING-REMITTING MULTIPLE SCLEROSIS
     Dosage: 1 G, UNK
     Route: 041
     Dates: start: 20020516, end: 20020518
  2. SOLU-MEDROL [Suspect]
     Dosage: 1 G, UNK
     Route: 041
     Dates: start: 20020523, end: 20020525
  3. SOLU-MEDROL [Suspect]
     Dosage: 1 G, UNK
     Route: 041
     Dates: start: 20020530, end: 20020601
  4. SOLU-MEDROL [Suspect]
     Dosage: 1 G, UNK
     Route: 041
     Dates: start: 20020731, end: 20020804
  5. BETAFERON [Suspect]
     Indication: RELAPSING-REMITTING MULTIPLE SCLEROSIS
     Dosage: 4 IU, UNK
     Dates: start: 20020731, end: 20020804
  6. BETAFERON [Suspect]
     Dosage: 8 IU, UNK
     Dates: start: 20020806, end: 20021107
  7. LOXONIN [Concomitant]
     Indication: PAIN PROPHYLAXIS
     Dosage: 180 MG, UNK
     Route: 048
     Dates: start: 20020731, end: 20020813
  8. DASEN [Concomitant]
     Indication: PAIN PROPHYLAXIS
     Dosage: UNK
     Route: 048
     Dates: start: 20020731, end: 20020813
  9. MUCOSTA [Concomitant]
     Indication: PROPHYLAXIS AGAINST GASTROINTESTINAL ULCER
     Dosage: 300 MG, UNK
     Route: 048
     Dates: start: 20020731, end: 20020813
  10. CYANOCOBALAMIN [Concomitant]
     Dosage: UNK
     Route: 048
     Dates: start: 20020731
  11. INDOMETHACIN SODIUM [Concomitant]
     Indication: PAIN PROPHYLAXIS
     Dosage: 75 MG, UNK
     Route: 048
     Dates: start: 20020907, end: 20020915
  12. GASTER [Concomitant]
     Indication: PROPHYLAXIS AGAINST GASTROINTESTINAL ULCER
     Dosage: 40 MG, UNK
     Route: 048
     Dates: start: 20020907, end: 20020915

REACTIONS (4)
  - HEMIPLEGIA [None]
  - MYELITIS TRANSVERSE [None]
  - NEUROMYELITIS OPTICA [None]
  - PARAPLEGIA [None]
